FAERS Safety Report 20734554 (Version 3)
Quarter: 2022Q2

REPORT INFORMATION
  Report Type: Report from Study
  Country: IL (occurrence: IL)
  Receive Date: 20220421
  Receipt Date: 20220610
  Transmission Date: 20220721
  Serious: Yes (Other)
  Sender: FDA-Public Use
  Company Number: IL-JNJFOC-20220424190

PATIENT
  Age: 31 Year
  Sex: Male
  Weight: 64 kg

DRUGS (15)
  1. ESKETAMINE [Suspect]
     Active Substance: ESKETAMINE
     Indication: Depression
     Dates: start: 20220302
  2. ESKETAMINE [Suspect]
     Active Substance: ESKETAMINE
     Dates: start: 20220306
  3. ESKETAMINE [Suspect]
     Active Substance: ESKETAMINE
     Dates: start: 20220309
  4. ESKETAMINE [Suspect]
     Active Substance: ESKETAMINE
     Dates: start: 20220313
  5. ESKETAMINE [Suspect]
     Active Substance: ESKETAMINE
     Dates: start: 20220316
  6. ESKETAMINE [Suspect]
     Active Substance: ESKETAMINE
     Dates: start: 20220321
  7. ESKETAMINE [Suspect]
     Active Substance: ESKETAMINE
     Dates: start: 20220323
  8. ESKETAMINE [Suspect]
     Active Substance: ESKETAMINE
     Dates: start: 20220327
  9. ESKETAMINE [Suspect]
     Active Substance: ESKETAMINE
     Dates: start: 20220329
  10. ESKETAMINE [Suspect]
     Active Substance: ESKETAMINE
     Dates: start: 20220403
  11. ESKETAMINE [Suspect]
     Active Substance: ESKETAMINE
     Dates: start: 20220407
  12. ESKETAMINE [Suspect]
     Active Substance: ESKETAMINE
     Dates: start: 20220410
  13. LAMOTRIGINE [Concomitant]
     Active Substance: LAMOTRIGINE
     Dosage: 300
     Route: 048
     Dates: start: 202108
  14. FLUOXETINE [Concomitant]
     Active Substance: FLUOXETINE HYDROCHLORIDE
     Dosage: 20
     Route: 048
     Dates: start: 202106
  15. VENLAFAXINE [Concomitant]
     Active Substance: VENLAFAXINE HYDROCHLORIDE
     Dosage: VENLAFAXINE/ VENLAFAXINE XR 150
     Route: 048
     Dates: start: 20210620, end: 20220405

REACTIONS (1)
  - Seizure [Recovered/Resolved]

NARRATIVE: CASE EVENT DATE: 20220411
